FAERS Safety Report 4557276-X (Version None)
Quarter: 2005Q1

REPORT INFORMATION
  Report Type: 
  Country: None (occurrence: None)
  Receive Date: 20050118
  Receipt Date: 20050105
  Transmission Date: 20050727
  Serious: Yes (Hospitalization)
  Sender: FDA-Public Use
  Company Number: 2002136246GB

PATIENT
  Age: 46 Year
  Sex: Female
  Weight: 100 kg

DRUGS (6)
  1. FRAGMIN [Suspect]
     Indication: ANGINA UNSTABLE
     Dosage: 20000 I.U. (10000 I.U., TWICE DAILY), SUBCUTANEOUS
     Route: 058
     Dates: start: 20001109, end: 20001125
  2. AUGMENTIN '125' [Concomitant]
  3. ORGANIC NITRATES (ORGANIC NITRATES) [Concomitant]
  4. FUROSEMIDE [Concomitant]
  5. CIPROFLOXACIN [Concomitant]
  6. PREDNISOLONE [Concomitant]

REACTIONS (4)
  - CHEST PAIN [None]
  - COMPARTMENT SYNDROME [None]
  - HAEMATOMA [None]
  - THROMBOSIS [None]
